FAERS Safety Report 10411608 (Version 3)
Quarter: 2014Q3

REPORT INFORMATION
  Report Type: Report from Study
  Country: US (occurrence: US)
  Receive Date: 20140827
  Receipt Date: 20140924
  Transmission Date: 20150326
  Serious: Yes (Other)
  Sender: FDA-Public Use
  Company Number: US-ROCHE-1452178

PATIENT

DRUGS (3)
  1. CAPECITABINE [Suspect]
     Active Substance: CAPECITABINE
     Indication: MEDULLARY THYROID CANCER
     Dosage: STARTING DOSE 500 MG/M2 TWICE A DAY DAYS 1-14 OF 21 DAY CYCLE AND THEN 1000 MG/M2 TWICE DAY DAYS 1-1
     Route: 048
  2. IMATINIB [Suspect]
     Active Substance: IMATINIB
     Indication: MEDULLARY THYROID CANCER
     Dosage: ON DAYS 1-21
     Route: 048
  3. DACARBAZINE. [Suspect]
     Active Substance: DACARBAZINE
     Indication: MEDULLARY THYROID CANCER
     Dosage: 1 HOUR ON DAYS 1-3
     Route: 042

REACTIONS (15)
  - Diarrhoea [Unknown]
  - Hypokalaemia [Unknown]
  - Insomnia [Unknown]
  - Neutrophil count abnormal [Unknown]
  - Ocular surface disease [Unknown]
  - Alanine aminotransferase increased [Unknown]
  - Abdominal distension [Unknown]
  - Dehydration [Unknown]
  - Dyspnoea [Unknown]
  - Nausea [Unknown]
  - Pain [Unknown]
  - Fatigue [Unknown]
  - Palmar-plantar erythrodysaesthesia syndrome [Unknown]
  - Myocardial ischaemia [Unknown]
  - Thrombocytopenia [Unknown]
